FAERS Safety Report 20856017 (Version 6)
Quarter: 2022Q3

REPORT INFORMATION
  Report Type: Report from Study
  Country: CN (occurrence: CN)
  Receive Date: 20220520
  Receipt Date: 20220816
  Transmission Date: 20221027
  Serious: Yes (Hospitalization, Other)
  Sender: FDA-Public Use
  Company Number: CN-BRISTOL-MYERS SQUIBB COMPANY-2022-039425

PATIENT
  Age: 60 Year
  Sex: Male
  Weight: 63 kg

DRUGS (2)
  1. CARBOPLATIN [Suspect]
     Active Substance: CARBOPLATIN
     Indication: Non-small cell lung cancer
     Dosage: PRIOR TO EVENT ONSET MOST RECENT DOSE OF 184 MG ON 13-JAN-2022?DOSE DELAYED ON  29-MAY-2022
     Route: 065
     Dates: start: 20211117
  2. PACLITAXEL [Suspect]
     Active Substance: PACLITAXEL
     Indication: Non-small cell lung cancer
     Dosage: PRIOR TO EVENT ONSET MOST RECENT DOSE OF 75.6 MG ON 13-JAN-2022?DOSE DELAYED ON  29-MAY-2022
     Route: 065
     Dates: start: 20211117

REACTIONS (1)
  - Radiation pneumonitis [Recovered/Resolved]

NARRATIVE: CASE EVENT DATE: 20220511
